FAERS Safety Report 13047391 (Version 1)
Quarter: 2016Q4

REPORT INFORMATION
  Report Type: Report from Study
  Country: None (occurrence: NL)
  Receive Date: 20161220
  Receipt Date: 20161220
  Transmission Date: 20170207
  Serious: Yes (Hospitalization)
  Sender: FDA-Public Use
  Company Number: NL-ABBVIE-16P-114-1815596-00

PATIENT
  Sex: Male

DRUGS (1)
  1. DUODOPA [Suspect]
     Active Substance: CARBIDOPA\LEVODOPA
     Indication: PARKINSON^S DISEASE
     Dosage: MORNING DOSE: 7.5, CONTINUOUS DOSE: 5.0, EXTRA DOSE: 3.0, NIGHT DOSE: 2.3-3.5
     Route: 050
     Dates: start: 20151006

REACTIONS (1)
  - Dehydration [Not Recovered/Not Resolved]
